FAERS Safety Report 8899979 (Version 1)
Quarter: 2012Q4

REPORT INFORMATION
  Report Type: 
  Country: US (occurrence: US)
  Receive Date: 20121108
  Receipt Date: 20121108
  Transmission Date: 20130627
  Serious: No
  Sender: FDA-Public Use
  Company Number: US-AMGEN-USASP2012037044

PATIENT
  Age: 55 Year
  Sex: Female

DRUGS (7)
  1. ENBREL [Suspect]
     Indication: PRODUCT USED FOR UNKNOWN INDICATION
     Dosage: 50 mg, qwk
     Route: 058
  2. IRON [Concomitant]
     Dosage: 18 mg, UNK
  3. ASPIRIN CHILDREN [Concomitant]
     Dosage: 81 mg, UNK
  4. VITAMIN C                          /00008001/ [Concomitant]
     Dosage: 250 mg, UNK
  5. OMEGA 3                            /01334101/ [Concomitant]
     Dosage: 1000 mg, UNK
  6. VITAMIN D /00107901/ [Concomitant]
     Dosage: UNK
  7. CALCIUM [Concomitant]
     Dosage: 500 mg, UNK

REACTIONS (2)
  - Balance disorder [Unknown]
  - Paraesthesia [Unknown]
